FAERS Safety Report 6294073-1 (Version None)
Quarter: 2009Q3

REPORT INFORMATION
  Report Type: 
  Country: None (occurrence: None)
  Receive Date: 20090803
  Receipt Date: 20080924
  Transmission Date: 20100115
  Serious: No
  Sender: FDA-Public Use
  Company Number: A0749191A

PATIENT
  Sex: Female

DRUGS (2)
  1. NICORETTE [Suspect]
  2. PROTONIX [Concomitant]

REACTIONS (5)
  - ABDOMINAL DISTENSION [None]
  - CHEST DISCOMFORT [None]
  - CHEST PAIN [None]
  - GASTROINTESTINAL DISORDER [None]
  - GASTROOESOPHAGEAL REFLUX DISEASE [None]
